FAERS Safety Report 10414002 (Version 2)
Quarter: 2016Q3

REPORT INFORMATION
  Report Type: Spontaneous
  Country: US (occurrence: US)
  Receive Date: 20140827
  Receipt Date: 20160816
  Transmission Date: 20161109
  Serious: No
  Sender: FDA-Public Use
  Company Number: US-GALDERMA-US14001510

PATIENT
  Age: 62 Year
  Sex: Female

DRUGS (9)
  1. BILBERRY [Concomitant]
     Active Substance: BILBERRY
     Route: 048
  2. CALCIUM [Concomitant]
     Active Substance: CALCIUM
     Route: 048
  3. METROGEL [Suspect]
     Active Substance: METRONIDAZOLE
     Indication: ROSACEA
     Dosage: 1%
     Route: 061
     Dates: start: 20130515
  4. METROGEL [Suspect]
     Active Substance: METRONIDAZOLE
     Dosage: 1 %
     Route: 061
     Dates: start: 20160218
  5. OLAY REGENERIST MOISTURIZER [Concomitant]
     Indication: DRY SKIN PROPHYLAXIS
     Route: 061
  6. VITAMIN C [Concomitant]
     Active Substance: ASCORBIC ACID
     Route: 048
  7. MULTIVITAMIN [Concomitant]
     Active Substance: VITAMINS
     Route: 048
  8. OLAY REGENERIST EYE SERUM [Concomitant]
     Route: 061
  9. OLAY REGENERIST CREAM [Concomitant]
     Route: 061

REACTIONS (2)
  - Drug ineffective [Recovered/Resolved]
  - Rosacea [Recovered/Resolved]

NARRATIVE: CASE EVENT DATE: 201404
